FAERS Safety Report 5920869-9 (Version None)
Quarter: 2008Q4

REPORT INFORMATION
  Report Type: 
  Country: None (occurrence: None)
  Receive Date: 20081015
  Receipt Date: 20081015
  Transmission Date: 20090506
  Serious: Yes (Death)
  Sender: FDA-Public Use
  Company Number: None

PATIENT
  Age: 86 Year
  Sex: Female
  Weight: 54.4316 kg

DRUGS (2)
  1. NITROFURANTOIN [Suspect]
     Indication: CYSTITIS
     Dosage: 14 DAYS
     Dates: start: 20080618, end: 20080627
  2. NITROFURANTOIN [Suspect]
     Dosage: 14 DAYS
     Dates: start: 20080711, end: 20080718

REACTIONS (9)
  - ASTHENIA [None]
  - CHEMICAL INJURY [None]
  - COLLAPSE OF LUNG [None]
  - DIZZINESS [None]
  - HAEMOPTYSIS [None]
  - NAUSEA [None]
  - OXYGEN SATURATION DECREASED [None]
  - PNEUMONIA [None]
  - SOMNOLENCE [None]
